FAERS Safety Report 22186417 (Version 1)
Quarter: 2023Q2

REPORT INFORMATION
  Report Type: Report from Study
  Country: US (occurrence: US)
  Receive Date: 20230407
  Receipt Date: 20230407
  Transmission Date: 20230722
  Serious: Yes (Other)
  Sender: FDA-Public Use
  Company Number: US-002147023-NVSC2023US077119

PATIENT
  Sex: Female

DRUGS (1)
  1. PREDNISONE [Suspect]
     Active Substance: PREDNISONE
     Indication: Systemic lupus erythematosus
     Dosage: UNK
     Route: 065

REACTIONS (17)
  - Systemic lupus erythematosus [Unknown]
  - Arthralgia [Recovered/Resolved]
  - Alopecia [Unknown]
  - Fatigue [Unknown]
  - Scar [Unknown]
  - Anxiety [Unknown]
  - Rash [Recovered/Resolved]
  - Weight increased [Unknown]
  - Renal disorder [Unknown]
  - Depression [Unknown]
  - Joint swelling [Recovered/Resolved]
  - Movement disorder [Recovered/Resolved]
  - Brain fog [Unknown]
  - Stomatitis [Unknown]
  - Skin hyperpigmentation [Unknown]
  - Butterfly rash [Unknown]
  - Swelling face [Recovered/Resolved]
